FAERS Safety Report 10135795 (Version 4)
Quarter: 2014Q2

REPORT INFORMATION
  Report Type: Spontaneous
  Country: ES (occurrence: ES)
  Receive Date: 20140429
  Receipt Date: 20140602
  Transmission Date: 20141212
  Serious: Yes (Other)
  Sender: FDA-Public Use
  Company Number: ES-AMGEN-ESPSP2014029524

PATIENT
  Age: 63 Year
  Sex: Female

DRUGS (3)
  1. PROLIA [Suspect]
     Indication: OSTEOPOROSIS POSTMENOPAUSAL
     Dosage: UNK UNK, Q6MO
     Route: 065
     Dates: start: 20120720
  2. CONDROSAN [Concomitant]
     Dosage: 400 MG, OCCASSIONAL
  3. VERISCAL D [Concomitant]
     Dosage: 1 TABLET,  QD

REACTIONS (3)
  - Urinary tract infection bacterial [Unknown]
  - Musculoskeletal pain [Recovering/Resolving]
  - Asthenia [Unknown]
